FAERS Safety Report 24200849 (Version 1)
Quarter: 2024Q3

REPORT INFORMATION
  Report Type: Spontaneous
  Country: BE (occurrence: None)
  Receive Date: 20240812
  Receipt Date: 20240812
  Transmission Date: 20241017
  Serious: Yes (Death, Hospitalization, Other)
  Sender: ASTRAZENECA
  Company Number: 2024A179308

PATIENT
  Age: 85 Year
  Sex: Male

DRUGS (22)
  1. DAPAGLIFLOZIN [Suspect]
     Active Substance: DAPAGLIFLOZIN
     Indication: Cardiac failure
     Dosage: 10 MG QD PO ; TIME INTERVAL: 0.25 D
     Route: 048
     Dates: start: 20240629, end: 20240702
  2. DAPAGLIFLOZIN [Suspect]
     Active Substance: DAPAGLIFLOZIN
     Indication: Cardiac failure
     Dosage: TIME INTERVAL: 0.25 D10.0MG UNKNOWN
     Route: 048
     Dates: start: 20231006, end: 20240618
  3. TAMSULOSIN HYDROCHLORIDE [Suspect]
     Active Substance: TAMSULOSIN HYDROCHLORIDE
     Indication: Prostatomegaly
     Dosage: 0.4 MG DAILY (QD) ; TIME INTERVAL: 0.25 D
     Route: 048
     Dates: end: 20240701
  4. EDOXABAN TOSYLATE [Suspect]
     Active Substance: EDOXABAN TOSYLATE
     Indication: Thrombosis
     Dosage: 30 MG QD ; TIME INTERVAL: 0.25 D30.0MG UNKNOWN
     Route: 048
     Dates: start: 20240621, end: 20240702
  5. BUMETANIDE [Suspect]
     Active Substance: BUMETANIDE
     Indication: Cardiac failure
     Dosage: TIME INTERVAL: 0.25 D1.0MG UNKNOWN
     Route: 048
     Dates: start: 20240621
  6. BUMETANIDE [Suspect]
     Active Substance: BUMETANIDE
     Indication: Cardiac failure
     Dosage: TIME INTERVAL: 0.25 D1.0MG UNKNOWN
     Route: 048
     Dates: start: 20230927
  7. BUMETANIDE [Suspect]
     Active Substance: BUMETANIDE
     Indication: Cardiac failure
     Dosage: TIME INTERVAL: 0.25 D2.0MG UNKNOWN
     Route: 040
     Dates: start: 20240701, end: 20240701
  8. BISOPROLOL [Concomitant]
     Active Substance: BISOPROLOL\BISOPROLOL FUMARATE
     Indication: Hypertension
     Dosage: 2.5 MG QD ; TIME INTERVAL: 0.25 D
     Route: 048
     Dates: start: 20240629
  9. BISOPROLOL [Concomitant]
     Active Substance: BISOPROLOL\BISOPROLOL FUMARATE
     Indication: Hypertension
     Dosage: 2.5 MG QD ; TIME INTERVAL: 0.25 D
     Route: 048
     Dates: start: 20230426
  10. ULTRA-K [Concomitant]
     Indication: Product used for unknown indication
     Route: 048
     Dates: start: 20240629
  11. ACORAMIDIS [Concomitant]
     Active Substance: ACORAMIDIS
     Indication: Cardiac amyloidosis
     Route: 048
     Dates: start: 20220816, end: 20240623
  12. SIMVASTATIN [Concomitant]
     Active Substance: SIMVASTATIN
     Indication: Hypercholesterolaemia
     Dosage: 0.25 - DAILY 20.0MG UNKNOWN
     Route: 048
  13. SCOPOLAMINE HYDROBROMIDE [Concomitant]
     Active Substance: SCOPOLAMINE HYDROBROMIDE
     Indication: Product used for unknown indication
     Dosage: 7.5ML UNKNOWN
     Route: 058
     Dates: start: 20240703
  14. MORPHINE [Concomitant]
     Active Substance: MORPHINE
     Indication: Product used for unknown indication
     Dosage: 5.0MG UNKNOWN
     Route: 058
     Dates: start: 20240701, end: 20240703
  15. MORPHINE [Concomitant]
     Active Substance: MORPHINE
     Indication: Product used for unknown indication
     Dosage: 5.0MG UNKNOWN
     Route: 040
     Dates: start: 20240701
  16. CORDARONE [Concomitant]
     Active Substance: AMIODARONE HYDROCHLORIDE
     Indication: Atrial fibrillation
     Dosage: TIME INTERVAL: 0.25 D
     Route: 048
     Dates: start: 20230309
  17. ALDACTONE [Concomitant]
     Active Substance: SPIRONOLACTONE
     Indication: Cardiac failure acute
     Dosage: TIME INTERVAL: 0.25 D200.0MG UNKNOWN
     Route: 040
     Dates: start: 20240630, end: 20240630
  18. ALDACTONE [Concomitant]
     Active Substance: SPIRONOLACTONE
     Indication: Cardiac failure acute
     Dosage: 25.0MG UNKNOWN
     Route: 048
  19. PIPERACILLIN SODIUM\TAZOBACTAM SODIUM [Concomitant]
     Active Substance: PIPERACILLIN SODIUM\TAZOBACTAM SODIUM
     Indication: Pneumonia
     Dosage: TIME INTERVAL: 0.25 D4.0G UNKNOWN
     Route: 040
     Dates: start: 20240625, end: 20240703
  20. ACETAMINOPHEN [Concomitant]
     Active Substance: ACETAMINOPHEN
     Indication: Product used for unknown indication
     Dosage: 1 G AS NEEDED (PRN)1.0G UNKNOWN
     Route: 040
     Dates: start: 20240630
  21. ACETAMINOPHEN [Concomitant]
     Active Substance: ACETAMINOPHEN
     Indication: Product used for unknown indication
     Dosage: 500 MG ONCE PO500.0MG UNKNOWN
     Route: 048
     Dates: start: 20240624, end: 20240624
  22. PANTOMED [Concomitant]
     Indication: Gastric ulcer
     Dosage: 40 MG QD
     Route: 048

REACTIONS (2)
  - Cardiac failure acute [Fatal]
  - Pneumonia [Fatal]

NARRATIVE: CASE EVENT DATE: 20240624
